FAERS Safety Report 18451564 (Version 1)
Quarter: 2020Q4

REPORT INFORMATION
  Report Type: Spontaneous
  Country: SE (occurrence: SE)
  Receive Date: 20201102
  Receipt Date: 20201102
  Transmission Date: 20210114
  Serious: Yes (Other)
  Sender: FDA-Public Use
  Company Number: SE-ROCHE-2705802

PATIENT
  Age: 54 Year
  Sex: Female

DRUGS (11)
  1. FOLSYRA [Concomitant]
     Dates: start: 20180321
  2. WARAN [Suspect]
     Active Substance: WARFARIN SODIUM
     Indication: PRODUCT USED FOR UNKNOWN INDICATION
     Dosage: TREATMENT SCHEDULE WITH 15 TABLETS A WEEK.
     Route: 065
     Dates: start: 20200622
  3. ESOMEPRAZOL [Suspect]
     Active Substance: ESOMEPRAZOLE
     Indication: PRODUCT USED FOR UNKNOWN INDICATION
     Route: 065
     Dates: start: 20190516
  4. ENALAPRIL [Concomitant]
     Active Substance: ENALAPRIL
     Dates: start: 20200731
  5. KALCIPOS-D [Concomitant]
     Active Substance: CALCIUM CARBONATE\CHOLECALCIFEROL
     Dates: start: 20170407
  6. REPLENS VAGINALGEL [Concomitant]
     Route: 067
     Dates: start: 20200727
  7. ROACTEMRA [Suspect]
     Active Substance: TOCILIZUMAB
     Indication: RHEUMATOID ARTHRITIS
     Route: 058
     Dates: start: 20200920
  8. BISOPROLOL [Concomitant]
     Active Substance: BISOPROLOL
     Dates: start: 20200616
  9. TRAMADOL RETARD [Concomitant]
     Active Substance: TRAMADOL
     Dates: start: 20200603
  10. SPIRONOLACTONE. [Concomitant]
     Active Substance: SPIRONOLACTONE
     Dates: start: 20200814
  11. IMOVANE [Concomitant]
     Active Substance: ZOPICLONE
     Dates: start: 20200615

REACTIONS (2)
  - Drug interaction [Recovered/Resolved]
  - International normalised ratio decreased [Recovered/Resolved]

NARRATIVE: CASE EVENT DATE: 20201009
